FAERS Safety Report 6162831-X (Version None)
Quarter: 2009Q2

REPORT INFORMATION
  Report Type: 
  Country: None (occurrence: None)
  Receive Date: 20090421
  Receipt Date: 20080922
  Transmission Date: 20091009
  Serious: No
  Sender: FDA-Public Use
  Company Number: US-ASTRAZENECA-2008UW19752

PATIENT
  Age: 58 Year
  Sex: Female

DRUGS (2)
  1. TOPROL-XL [Suspect]
     Indication: MYOCARDIAL ISCHAEMIA
     Route: 048
     Dates: start: 20080101, end: 20080919
  2. TOPROL-XL [Suspect]
     Indication: CARDIAC DISORDER
     Route: 048
     Dates: start: 20080101, end: 20080919

REACTIONS (6)
  - ABNORMAL DREAMS [None]
  - ANXIETY [None]
  - DIZZINESS [None]
  - DYSPNOEA [None]
  - TACHYCARDIA [None]
  - TINNITUS [None]
